FAERS Safety Report 6249929-2 (Version None)
Quarter: 2009Q2

REPORT INFORMATION
  Report Type: 
  Country: None (occurrence: None)
  Receive Date: 20090629
  Receipt Date: 20090618
  Transmission Date: 20091009
  Serious: Yes (Other)
  Sender: FDA-Public Use
  Company Number: ES-BAXTER-2009BH010330

PATIENT
  Age: 51 Year
  Sex: Male
  Weight: 55 kg

DRUGS (4)
  1. CYCLOPHOSPHAMIDE [Suspect]
     Indication: MULTIPLE MYELOMA
     Dosage: DIAS 1,8
     Route: 042
     Dates: start: 20081110, end: 20090422
  2. ZOMETA [Suspect]
     Indication: MULTIPLE MYELOMA
     Dosage: DIA 4
     Route: 042
     Dates: start: 20081113, end: 20090114
  3. DEXAMETHASONE [Suspect]
     Indication: MULTIPLE MYELOMA
     Dosage: DIAS 1,2,4,5,8,9,11,12
     Route: 048
     Dates: start: 20081110, end: 20090422
  4. VELCADE [Suspect]
     Indication: MULTIPLE MYELOMA
     Dosage: DIAS 1,4,8,11
     Route: 042
     Dates: start: 20081110, end: 20090422

REACTIONS (1)
  - OSTEONECROSIS [None]
